FAERS Safety Report 19987515 (Version 11)
Quarter: 2023Q1

REPORT INFORMATION
  Report Type: Report from Study
  Country: GB (occurrence: GB)
  Receive Date: 20211022
  Receipt Date: 20230214
  Transmission Date: 20230418
  Serious: Yes (Life-Threatening, Hospitalization, Disabling, Other)
  Sender: FDA-Public Use
  Company Number: GB-BRISTOL-MYERS SQUIBB COMPANY-BMS-2021-109469

PATIENT
  Age: 70 Year
  Sex: Male
  Weight: 72.3 kg

DRUGS (11)
  1. NIVOLUMAB [Suspect]
     Active Substance: NIVOLUMAB
     Indication: Oesophageal adenocarcinoma
     Dosage: 247 MILLIGRAM, Q2WK
     Route: 042
     Dates: start: 20210518, end: 20211006
  2. IPILIMUMAB [Suspect]
     Active Substance: IPILIMUMAB
     Indication: Oesophageal adenocarcinoma
     Dosage: 82 MILLIGRAM, Q6WK
     Route: 042
     Dates: start: 20210518, end: 20211006
  3. LANSOPRAZOLE [Concomitant]
     Active Substance: LANSOPRAZOLE
     Indication: Prophylaxis
     Dosage: 30 MILLIGRAM, 2 IN 1 DAYS
     Route: 048
     Dates: start: 202011
  4. BISOPROLOL [Concomitant]
     Active Substance: BISOPROLOL
     Indication: Cardiomyopathy
     Dosage: 2.5 MILLIGRAM, QD
     Route: 048
     Dates: start: 202003
  5. BISOPROLOL [Concomitant]
     Active Substance: BISOPROLOL
     Indication: Atrial fibrillation
  6. DEXAMETHASONE [Concomitant]
     Active Substance: DEXAMETHASONE
     Indication: Product used for unknown indication
     Dosage: 1 DOSAGE FORM
     Route: 031
     Dates: start: 202010
  7. PREDNISOLONE [Concomitant]
     Active Substance: PREDNISOLONE
     Indication: Diarrhoea
     Dosage: 5 MILLIGRAM, QD
     Route: 048
     Dates: start: 20210906, end: 20210908
  8. PREDNISOLONE [Concomitant]
     Active Substance: PREDNISOLONE
     Indication: Blood creatinine increased
     Dosage: 80 MILLIGRAM, QD
     Route: 048
     Dates: start: 20211016, end: 20211018
  9. DIORALYTE [GLUCOSE;POTASSIUM CHLORIDE;SODIUM BICARBONATE;SODIUM CHLORI [Concomitant]
     Indication: Diarrhoea
     Dosage: 2 SACHETS, QD
     Route: 048
     Dates: start: 20211016, end: 20211018
  10. HYDROCORTISONE [Concomitant]
     Active Substance: HYDROCORTISONE
     Indication: Product used for unknown indication
     Dosage: 10 MILLIGRAM, QD
     Route: 048
     Dates: start: 20210824, end: 20211013
  11. METHYLPREDNISOLONE [Concomitant]
     Active Substance: METHYLPREDNISOLONE
     Indication: Product used for unknown indication
     Route: 042
     Dates: start: 20211012, end: 20211015

REACTIONS (1)
  - Colitis [Recovered/Resolved]

NARRATIVE: CASE EVENT DATE: 20211018
